FAERS Safety Report 11153213 (Version 2)
Quarter: 2015Q2

REPORT INFORMATION
  Report Type: Report from Study
  Country: BR (occurrence: BR)
  Receive Date: 20150601
  Receipt Date: 20150630
  Transmission Date: 20150821
  Serious: Yes (Other)
  Sender: FDA-Public Use
  Company Number: PHHY2015BR065140

PATIENT
  Age: 29 Year
  Sex: Male
  Weight: 95 kg

DRUGS (3)
  1. EXJADE [Suspect]
     Active Substance: DEFERASIROX
     Dosage: 3 DF (15 MG/KG), QD
     Route: 065
     Dates: end: 201503
  2. EXJADE [Suspect]
     Active Substance: DEFERASIROX
     Dosage: 2 DF (10 MG/KG), QD
     Route: 065
  3. EXJADE [Suspect]
     Active Substance: DEFERASIROX
     Indication: IRON OVERLOAD
     Dosage: 1 DF (5MG/KG), QD
     Route: 065

REACTIONS (2)
  - Dengue fever [Recovered/Resolved]
  - Serum ferritin increased [Unknown]

NARRATIVE: CASE EVENT DATE: 201504
